FAERS Safety Report 5854765-2 (Version None)
Quarter: 2008Q3

REPORT INFORMATION
  Report Type: 
  Country: None (occurrence: None)
  Receive Date: 20080822
  Receipt Date: 20080102
  Transmission Date: 20090109
  Serious: No
  Sender: FDA-Public Use
  Company Number: US-ABBOTT-08P-163-0432227-00

PATIENT
  Sex: Female

DRUGS (3)
  1. SYNTHROID [Suspect]
     Indication: HYPOTHYROIDISM
     Route: 048
     Dates: start: 20071001, end: 20080101
  2. EZETIMIBE [Concomitant]
     Indication: DRUG USE FOR UNKNOWN INDICATION
     Route: 048
     Dates: start: 20070901
  3. LISINOPRIL [Concomitant]
     Indication: DRUG USE FOR UNKNOWN INDICATION
     Route: 048
     Dates: start: 20071001

REACTIONS (6)
  - ABDOMINAL PAIN UPPER [None]
  - BURNING SENSATION [None]
  - GLOSSODYNIA [None]
  - ORAL DISCOMFORT [None]
  - THROAT IRRITATION [None]
  - TONGUE ERUPTION [None]
